FAERS Safety Report 9248760 (Version 1)
Quarter: 2013Q1

REPORT INFORMATION
  Report Type: Spontaneous
  Country: US (occurrence: None)
  Receive Date: 20130305
  Receipt Date: 20130305
  Transmission Date: 20140127
  Serious: Yes (Other)
  Sender: FDA-Public Use
  Company Number: 163-21880-12101282

PATIENT
  Age: 48 Year
  Sex: Female

DRUGS (11)
  1. REVLIMID (LENALIDOMIDE) (CAPSULES) [Suspect]
     Indication: PLASMA CELL MYELOMA
     Dosage: 15 MG, 28 IN 28 D, PO
     Dates: start: 20110202
  2. PREDNISONE (PREDNISONE) [Concomitant]
  3. FAMCICLOVIR (FAMCICLOVIR) [Concomitant]
  4. METOCLOPRAMIDE (METOCLOPRAMIDE) [Concomitant]
  5. PAROXETINE (PAROXETINE) [Concomitant]
  6. LISINOPRIL (LISINOPRIL) [Concomitant]
  7. HALOPERIDOL (HALOPERIDOL) [Concomitant]
  8. WARFARIN (WARFARIN) [Concomitant]
  9. VICODIN (VICODIN) [Concomitant]
  10. ENOXAPARIN (ENOXAPARIN) [Concomitant]
  11. IRON (IRON) [Concomitant]

REACTIONS (1)
  - Nausea [None]
